FAERS Safety Report 7552864-0 (Version None)
Quarter: 2011Q2

REPORT INFORMATION
  Report Type: 
  Country: None (occurrence: None)
  Receive Date: 20110616
  Receipt Date: 20110613
  Transmission Date: 20111010
  Serious: Yes (Death, Other)
  Sender: FDA-Public Use
  Company Number: PHHY2011US28878

PATIENT
  Sex: Female

DRUGS (8)
  1. PRILOSEC [Concomitant]
  2. AROMASIN [Concomitant]
  3. SENOKOT                                 /UNK/ [Concomitant]
  4. PERCOCET [Concomitant]
  5. OXYCONTIN [Concomitant]
  6. ZOMETA [Suspect]
     Indication: BREAST CANCER METASTATIC
     Dosage: UNK
  7. SYNTHROID [Concomitant]
  8. DECADRON [Concomitant]

REACTIONS (6)
  - METASTASES TO BONE [None]
  - ACUTE RESPIRATORY DISTRESS SYNDROME [None]
  - SPINAL CORD COMPRESSION [None]
  - ARTHRALGIA [None]
  - PARAESTHESIA [None]
  - PNEUMONIA [None]
